FAERS Safety Report 4528640-X (Version None)
Quarter: 2004Q4

REPORT INFORMATION
  Report Type: 
  Country: None (occurrence: None)
  Receive Date: 20041216
  Receipt Date: 20041202
  Transmission Date: 20050328
  Serious: Yes (Hospitalization, Disabling, Other)
  Sender: FDA-Public Use
  Company Number: US-GLAXOSMITHKLINE-A0535793A

PATIENT
  Age: 54 Year
  Sex: Male
  Weight: 100 kg

DRUGS (6)
  1. GAVISCON [Suspect]
     Indication: DYSPEPSIA
     Route: 048
     Dates: start: 19960101
  2. GAVISCON [Suspect]
     Indication: DYSPEPSIA
     Route: 048
     Dates: start: 19960101
  3. ACIPHEX [Concomitant]
     Indication: GASTROOESOPHAGEAL REFLUX DISEASE
     Route: 048
  4. PULMICORT [Concomitant]
     Indication: ASTHMA
     Route: 055
  5. ALBUTEROL [Concomitant]
     Indication: ASTHMA
     Route: 055
  6. OXYGEN THERAPY [Concomitant]
     Indication: ASTHMA
     Route: 055

REACTIONS (10)
  - ABASIA [None]
  - AMNESIA [None]
  - ASTHENIA [None]
  - CEREBROVASCULAR ACCIDENT [None]
  - CORONARY ARTERY OCCLUSION [None]
  - DIZZINESS [None]
  - HEMIPARESIS [None]
  - LOSS OF CONSCIOUSNESS [None]
  - PROGRESSIVE SUPRANUCLEAR PALSY [None]
  - WALKING AID USER [None]
